FAERS Safety Report 7318856-1 (Version None)
Quarter: 2011Q1

REPORT INFORMATION
  Report Type: 
  Country: None (occurrence: None)
  Receive Date: 20110228
  Receipt Date: 20101130
  Transmission Date: 20110831
  Serious: No
  Sender: FDA-Public Use
  Company Number: A0890290A

PATIENT
  Sex: Female

DRUGS (1)
  1. SUMATRIPTAN SUCCINATE [Suspect]
     Indication: MIGRAINE
     Route: 030

REACTIONS (2)
  - INCORRECT ROUTE OF DRUG ADMINISTRATION [None]
  - DRUG ADMINISTRATION ERROR [None]
